FAERS Safety Report 4518039-4 (Version None)
Quarter: 2004Q4

REPORT INFORMATION
  Report Type: 
  Country: None (occurrence: None)
  Receive Date: 20041130
  Receipt Date: 20041116
  Transmission Date: 20050328
  Serious: Yes (Hospitalization)
  Sender: FDA-Public Use
  Company Number: 2004-122288-NL

PATIENT
  Age: 31 Year
  Sex: Female

DRUGS (3)
  1. MENOTROPHIN [Suspect]
     Indication: INFERTILITY
     Dosage: DF
  2. MENOTROPHIN [Suspect]
     Indication: INFERTILITY
     Dosage: DF
  3. BUSERELIN ACETATE [Concomitant]

REACTIONS (3)
  - OVARIAN HYPERSTIMULATION SYNDROME [None]
  - PAIN [None]
  - VULVAL OEDEMA [None]
